FAERS Safety Report 18271446 (Version 1)
Quarter: 2020Q3

REPORT INFORMATION
  Report Type: Spontaneous
  Country: US (occurrence: US)
  Receive Date: 20200916
  Receipt Date: 20200916
  Transmission Date: 20201103
  Serious: No
  Sender: FDA-Public Use
  Company Number: US-ITALFARMACO SPA-2090771

PATIENT
  Age: 57 Year
  Sex: Female

DRUGS (13)
  1. MIRALAX [Concomitant]
     Active Substance: POLYETHYLENE GLYCOL 3350
  2. VITAMIN B COMPLEX [Concomitant]
     Active Substance: CYANOCOBALAMIN\DEXPANTHENOL\NIACINAMIDE\PYRIDOXINE HYDROCHLORIDE\RIBOFLAVIN 5^-PHOSPHATE SODIUM\THIAMINE HYDROCHLORIDE\VITAMIN B COMPLEX
  3. ALOE VERA [Concomitant]
     Active Substance: ALOE VERA LEAF
  4. ALPHA LIPOIC [Concomitant]
  5. COENZYME Q10 [Concomitant]
     Active Substance: DIETARY SUPPLEMENT\UBIDECARENONE
  6. SPIRULINA [Concomitant]
     Active Substance: SPIRULINA
  7. VITAMIN B12 [Concomitant]
     Active Substance: CYANOCOBALAMIN
  8. BARLEY GRASS [Concomitant]
  9. GUAIFENESIN. [Concomitant]
     Active Substance: GUAIFENESIN
  10. MELATONIN [Concomitant]
     Active Substance: MELATONIN
  11. RADICAVA [Concomitant]
     Active Substance: EDARAVONE
  12. TIGLUTIK [Suspect]
     Active Substance: RILUZOLE
     Indication: AMYOTROPHIC LATERAL SCLEROSIS
     Route: 048
     Dates: start: 20200701, end: 20200730
  13. GLYCOPYRROLATE. [Concomitant]
     Active Substance: GLYCOPYRROLATE

REACTIONS (2)
  - Liver function test increased [Unknown]
  - Blood pressure increased [Unknown]
